FAERS Safety Report 13643280 (Version 2)
Quarter: 2017Q2

REPORT INFORMATION
  Report Type: Spontaneous
  Country: RU (occurrence: RU)
  Receive Date: 20170612
  Receipt Date: 20170623
  Transmission Date: 20170830
  Serious: Yes (Death, Hospitalization, Other)
  Sender: FDA-Public Use
  Company Number: RU-AMGEN-RUSSP2017082813

PATIENT
  Age: 4 Year
  Sex: Female

DRUGS (27)
  1. GENTAMICIN. [Concomitant]
     Active Substance: GENTAMICIN
     Dosage: 40 MG, UNK
     Route: 048
     Dates: start: 20170528, end: 20170529
  2. DEXAMETHASONE. [Concomitant]
     Active Substance: DEXAMETHASONE
     Dosage: 2 MG, QD
     Route: 048
     Dates: start: 20170526, end: 20170526
  3. DORIPREX [Concomitant]
     Active Substance: DORIPENEM
     Dosage: 350 MG, UNK
     Route: 042
     Dates: start: 20170526, end: 20170530
  4. URDOXA [Concomitant]
     Dosage: 250 MG, UNK
     Route: 048
     Dates: start: 20170523, end: 20170529
  5. ZODAC [Concomitant]
     Active Substance: CETIRIZINE HYDROCHLORIDE
     Dosage: 10 UNK, UNK
     Route: 048
     Dates: start: 20170517, end: 20170526
  6. SULPERAZONE [Concomitant]
     Active Substance: CEFOPERAZONE SODIUM\SULBACTAM SODIUM
     Dosage: 1 G, UNK
     Route: 042
     Dates: start: 20170515, end: 20170524
  7. DIFLUCAN [Concomitant]
     Active Substance: FLUCONAZOLE
     Dosage: 150 MG, UNK
     Route: 048
     Dates: start: 20170515, end: 20170515
  8. GAMUNEX [Concomitant]
     Active Substance: HUMAN IMMUNOGLOBULIN G
     Dosage: 5 G, UNK
     Route: 042
     Dates: start: 20170526, end: 20170526
  9. HEPTRAL [Concomitant]
     Active Substance: ADEMETIONINE
     Dosage: 200 MG, UNK
     Route: 042
     Dates: start: 20170518, end: 20170530
  10. CYTOFLAVIN [Concomitant]
     Dosage: 5 ML, UNK
     Route: 042
     Dates: start: 20170523, end: 20170529
  11. DEXAMETHASONE. [Concomitant]
     Active Substance: DEXAMETHASONE
     Dosage: 4.5 MG, QD
     Route: 048
     Dates: start: 20170503, end: 20170503
  12. LINEZOLID. [Concomitant]
     Active Substance: LINEZOLID
     Dosage: 200 MG, UNK
     Route: 042
     Dates: start: 20170515, end: 20170530
  13. DEXAMETHASONE. [Concomitant]
     Active Substance: DEXAMETHASONE
     Dosage: 3 MG, QD
     Route: 048
     Dates: start: 20170523, end: 20170524
  14. DEXAMETHASONE. [Concomitant]
     Active Substance: DEXAMETHASONE
     Dosage: 2.5 MG, QD
     Route: 048
     Dates: start: 20170524, end: 20170524
  15. AMIKACIN [Concomitant]
     Active Substance: AMIKACIN
     Dosage: 200 MG, UNK
     Route: 042
     Dates: start: 20170526, end: 20170526
  16. NOXAFIL [Concomitant]
     Active Substance: POSACONAZOLE
     Dosage: 100 MG, UNK
     Route: 048
     Dates: start: 20170526, end: 20170529
  17. EUPHYLLIN [Concomitant]
     Active Substance: AMINOPHYLLINE
     Dosage: 72 UNK, UNK
     Route: 048
     Dates: start: 20170523, end: 20170530
  18. PREDNISOLONE. [Concomitant]
     Active Substance: PREDNISOLONE
     Dosage: 20 MG, UNK
     Route: 042
     Dates: start: 20170527, end: 20170527
  19. BLINCYTO [Suspect]
     Active Substance: BLINATUMOMAB
     Dosage: 15 MUG/KG, QD
     Route: 042
     Dates: start: 20170513, end: 20170523
  20. IMIPENEM [Concomitant]
     Active Substance: IMIPENEM
     Dosage: 330 MG, UNK
     Route: 042
     Dates: start: 20170524, end: 20170526
  21. VFEND [Concomitant]
     Active Substance: VORICONAZOLE
     Dosage: 140 MG, UNK
     Route: 042
     Dates: start: 20170515, end: 20170525
  22. COTRIMOXAZOLE [Concomitant]
     Active Substance: SULFAMETHOXAZOLE\TRIMETHOPRIM
     Dosage: 240 MG, UNK
     Route: 048
     Dates: start: 20170503, end: 20170529
  23. NORMOFUNDIN [Concomitant]
     Active Substance: UNSPECIFIED INGREDIENT
     Dosage: 300-1000
     Route: 042
     Dates: start: 20170515, end: 20170530
  24. BLINCYTO [Suspect]
     Active Substance: BLINATUMOMAB
     Indication: ACUTE LYMPHOCYTIC LEUKAEMIA
     Dosage: 5 MUG/KG, QD
     Route: 042
     Dates: start: 20170506, end: 20170512
  25. GORDOX [Concomitant]
     Dosage: 5 UNK, UNK
     Route: 042
     Dates: start: 20170525, end: 20170529
  26. NIMULID [Concomitant]
     Dosage: 3 ML, UNK
     Route: 048
     Dates: start: 20170515, end: 20170529
  27. DEXAMETHASONE. [Concomitant]
     Active Substance: DEXAMETHASONE
     Dosage: 4.5 MG, QD
     Route: 048
     Dates: start: 20170507, end: 20170522

REACTIONS (3)
  - Hepatitis toxic [Not Recovered/Not Resolved]
  - Pneumonia [Not Recovered/Not Resolved]
  - Cardiac failure acute [Fatal]

NARRATIVE: CASE EVENT DATE: 20170518
